FAERS Safety Report 4888607-9 (Version None)
Quarter: 2005Q4

REPORT INFORMATION
  Report Type: 
  Country: None (occurrence: None)
  Receive Date: 20051215
  Receipt Date: 20041202
  Transmission Date: 20060501
  Serious: Yes (Hospitalization, Disabling, Other)
  Sender: FDA-Public Use
  Company Number: 2004108155

PATIENT
  Age: 86 Year
  Sex: Male
  Weight: 79.3795 kg

DRUGS (5)
  1. BEXTRA [Suspect]
     Indication: ARTHRITIS
     Dosage: 10 MG (10 MG 1 IN 1 D) ORAL
     Route: 048
  2. CLOPIDOGREL BISULFATE [Concomitant]
  3. TAMSULOSIN HYDROCHLORIDE (TAMSULOSIN HYDROCHLORIDE) [Concomitant]
  4. FINASTERIDE [Concomitant]
  5. ASPIRIN [Concomitant]

REACTIONS (3)
  - CEREBROVASCULAR ACCIDENT [None]
  - DIFFICULTY IN WALKING [None]
  - PARALYSIS [None]
